FAERS Safety Report 7556467-3 (Version None)
Quarter: 2011Q2

REPORT INFORMATION
  Report Type: 
  Country: None (occurrence: None)
  Receive Date: 20110615
  Receipt Date: 20110615
  Transmission Date: 20111010
  Serious: Yes (Other)
  Sender: FDA-Public Use
  Company Number: None

PATIENT
  Age: 58 Year
  Sex: Female
  Weight: 81.6475 kg

DRUGS (1)
  1. BACTRIM [Suspect]

REACTIONS (15)
  - VOMITING [None]
  - HYPOAESTHESIA [None]
  - BALANCE DISORDER [None]
  - PAIN IN EXTREMITY [None]
  - HEADACHE [None]
  - FATIGUE [None]
  - BRADYPHRENIA [None]
  - HYPERHIDROSIS [None]
  - CHILLS [None]
  - SPEECH DISORDER [None]
  - TREMOR [None]
  - OCULAR HYPERAEMIA [None]
  - MUSCLE SPASMS [None]
  - MUSCULOSKELETAL STIFFNESS [None]
  - NIGHTMARE [None]
